FAERS Safety Report 8554676-8 (Version None)
Quarter: 2012Q3

REPORT INFORMATION
  Report Type: 
  Country: None (occurrence: None)
  Receive Date: 20120725
  Receipt Date: 20120725
  Transmission Date: 20120928
  Serious: No
  Sender: FDA-Public Use
  Company Number: None

PATIENT
  Age: 84 Year
  Sex: Male
  Weight: 76 kg

DRUGS (1)
  1. MORPHINE [Suspect]
     Dosage: 15 MG BID PO
     Route: 048
     Dates: start: 20120302, end: 20120313

REACTIONS (6)
  - CARDIAC ARREST [None]
  - ILEUS PARALYTIC [None]
  - HYPOXIA [None]
  - PULSELESS ELECTRICAL ACTIVITY [None]
  - COLONIC PSEUDO-OBSTRUCTION [None]
  - BRADYCARDIA [None]
